FAERS Safety Report 4318998-9 (Version None)
Quarter: 2004Q1

REPORT INFORMATION
  Report Type: 
  Country: None (occurrence: None)
  Receive Date: 20040318
  Receipt Date: 20040309
  Transmission Date: 20041129
  Serious: Yes (Other)
  Sender: FDA-Public Use
  Company Number: FR-BRISTOL-MYERS SQUIBB COMPANY-12534731

PATIENT
  Sex: Female

DRUGS (5)
  1. APROVEL TABS [Suspect]
     Route: 048
     Dates: end: 20020418
  2. SODIUM BICARBONATE [Suspect]
     Dosage: ^BICARBONATE DE SODIUM 1,5 K BELLCO^ 2 GLASSES WEEKLY
     Route: 048
     Dates: start: 20020418, end: 20020719
  3. CACIT [Suspect]
     Route: 048
     Dates: start: 20020425, end: 20020523
  4. ASPEGIC 325 [Suspect]
     Route: 048
     Dates: start: 20020418, end: 20020523
  5. EPREX [Suspect]
     Route: 048
     Dates: start: 20020418, end: 20020719

REACTIONS (7)
  - CAESAREAN SECTION [None]
  - CONGENITAL VENTRICULAR SEPTAL DEFECT [None]
  - GESTATIONAL DIABETES [None]
  - NEONATAL DISORDER [None]
  - PREGNANCY [None]
  - PREMATURE BABY [None]
  - VESICOURETERIC REFLUX [None]
